FAERS Safety Report 25203252 (Version 1)
Quarter: 2025Q2

REPORT INFORMATION
  Report Type: Spontaneous
  Country: US (occurrence: None)
  Receive Date: 20250415
  Receipt Date: 20250415
  Transmission Date: 20250717
  Serious: Yes (Hospitalization, Other)
  Sender: FDA-CTU
  Company Number: None

PATIENT
  Age: 70 Year
  Sex: Male
  Weight: 93.15 kg

DRUGS (16)
  1. NURTEC ODT [Suspect]
     Active Substance: RIMEGEPANT SULFATE
     Indication: Migraine
     Dosage: OTHER QUANTITY : 8 TABLET(S);?OTHER FREQUENCY : EVERY 2 DAYS;?
     Route: 060
     Dates: start: 20250414, end: 20250415
  2. MEPERIDINE [Concomitant]
     Active Substance: MEPERIDINE
  3. SOMA [Concomitant]
     Active Substance: CARISOPRODOL
  4. TYLENOL WITH CODEINE [Concomitant]
     Active Substance: ACETAMINOPHEN\CODEINE PHOSPHATE
  5. DEVICE [Concomitant]
     Active Substance: DEVICE
  6. NITROGLYCERIN [Concomitant]
     Active Substance: NITROGLYCERIN
  7. VITAMIN D3 [Concomitant]
     Active Substance: CHOLECALCIFEROL
  8. POTASSIUM [Concomitant]
     Active Substance: POTASSIUM
  9. METOPROLOL [Concomitant]
     Active Substance: METOPROLOL
  10. LOSARTAN [Concomitant]
     Active Substance: LOSARTAN
  11. LEVALBUTEROL [Concomitant]
     Active Substance: LEVALBUTEROL
  12. FLUOXETINE [Concomitant]
     Active Substance: FLUOXETINE HYDROCHLORIDE
  13. FLUTICASONE [Concomitant]
     Active Substance: FLUTICASONE
  14. ALBUTEROL [Concomitant]
     Active Substance: ALBUTEROL
  15. NURTEC ODT [Concomitant]
     Active Substance: RIMEGEPANT SULFATE
  16. MAGNESIUM [Concomitant]
     Active Substance: MAGNESIUM

REACTIONS (6)
  - Vomiting projectile [None]
  - Gastrooesophageal reflux disease [None]
  - Abdominal distension [None]
  - Drug ineffective [None]
  - Illness [None]
  - Diaphragmatic hernia [None]

NARRATIVE: CASE EVENT DATE: 20250414
